FAERS Safety Report 8760487 (Version 1)
Quarter: 2012Q4

REPORT INFORMATION
  Report Type: 
  Country: GB (occurrence: GB)
  Receive Date: 20120830
  Receipt Date: 20120830
  Transmission Date: 20130627
  Serious: Yes (Other)
  Sender: FDA-Public Use
  Company Number: GB-UCBSA-064235

PATIENT
  Age: 41 Year
  Sex: Female
  Weight: 58.8 kg

DRUGS (3)
  1. CIMZIA [Suspect]
     Indication: RHEUMATOID ARTHRITIS
     Route: 058
     Dates: start: 20120627, end: 20120731
  2. FERROUS SULPHATE [Concomitant]
     Route: 048
     Dates: start: 201204
  3. LEFLUNOMIDE [Concomitant]
     Route: 048
     Dates: start: 20120416

REACTIONS (1)
  - Menorrhagia [Not Recovered/Not Resolved]
